FAERS Safety Report 9508944 (Version 1)
Quarter: 2013Q3

REPORT INFORMATION
  Report Type: Spontaneous
  Country: US (occurrence: US)
  Receive Date: 20130909
  Receipt Date: 20130909
  Transmission Date: 20140515
  Serious: No
  Sender: FDA-Public Use
  Company Number: US-BRISTOL-MYERS SQUIBB COMPANY-19079474

PATIENT
  Sex: Male

DRUGS (3)
  1. ABILIFY [Suspect]
     Indication: DEPRESSION
     Dosage: CURRENTLY 5MG
     Dates: start: 20110610
  2. BUPROPION HCL [Concomitant]
  3. LEXAPRO [Concomitant]

REACTIONS (2)
  - Weight increased [Unknown]
  - Feeling abnormal [Unknown]
